FAERS Safety Report 7504153-8 (Version None)
Quarter: 2011Q2

REPORT INFORMATION
  Report Type: 
  Country: None (occurrence: None)
  Receive Date: 20110525
  Receipt Date: 20110513
  Transmission Date: 20111010
  Serious: Yes (Hospitalization)
  Sender: FDA-Public Use
  Company Number: US-ELI_LILLY_AND_COMPANY-US201006007909

PATIENT
  Sex: Female

DRUGS (23)
  1. MULTI-VITAMIN [Concomitant]
     Dosage: UNK, DAILY (1/D)
     Route: 065
  2. POTASSIUM CHLORIDE [Concomitant]
     Dosage: 20 MG, DAILY (1/D)
  3. VITAMIN B12 NOS [Concomitant]
     Dosage: 1000 MG, DAILY (1/D)
     Route: 065
  4. FORTEO [Suspect]
     Dosage: 20 UG, QD
  5. FERROUS SULFATE TAB [Concomitant]
     Dosage: 65 MG, DAILY (1/D)
     Route: 065
  6. FUROSEMIDE [Concomitant]
     Dosage: 40 MG, DAILY (1/D)
     Route: 065
  7. FORTEO [Suspect]
     Indication: OSTEOPOROSIS
     Dosage: 20 UG, DAILY (1/D)
     Route: 065
     Dates: start: 20091007
  8. CALCIUM W/VITAMIN D NOS [Concomitant]
     Dosage: 5000 MG, 3/D
     Route: 065
  9. PRILOSEC [Concomitant]
     Dosage: 40 MG, DAILY (1/D)
     Route: 065
  10. LASIX [Concomitant]
  11. NEURONTIN [Concomitant]
     Dosage: 300 MG, DAILY (1/D)
     Route: 065
  12. CORTIZONE [Concomitant]
     Indication: MUSCULOSKELETAL PAIN
  13. CALCIUM CARBONATE [Concomitant]
  14. VITAMIN D [Concomitant]
  15. FORTEO [Suspect]
     Dosage: 20 UG, DAILY (1/D)
  16. PACERONE [Concomitant]
     Dosage: 200 MG, DAILY (1/D)
     Route: 065
  17. CARDIZEM [Concomitant]
     Dosage: 240 MG, DAILY (1/D)
     Route: 065
  18. DARVOCET [Concomitant]
     Indication: ROTATOR CUFF SYNDROME
     Dosage: 650 MG, AS NEEDED UP TO 4 TIMES A DAY
     Route: 065
  19. NAPROSYN [Concomitant]
     Indication: ROTATOR CUFF SYNDROME
     Dosage: 500 MG, 2/D
     Route: 065
  20. KLOR-CON [Concomitant]
     Dosage: 10 MG, 2/D
     Route: 065
  21. DULCOLAX [Concomitant]
     Dosage: 5MG, TWICE DAILY AS NEEDED
  22. SYNTHROID [Concomitant]
     Dosage: 25 MG, DAILY (1/D)
     Route: 065
  23. FERROUS SULFATE TAB [Concomitant]

REACTIONS (8)
  - DRUG ADMINISTRATION ERROR [None]
  - DRUG DOSE OMISSION [None]
  - STRESS [None]
  - ROTATOR CUFF SYNDROME [None]
  - PAIN IN EXTREMITY [None]
  - IRRITABILITY [None]
  - COLON ADENOMA [None]
  - ARTHRITIS [None]
